FAERS Safety Report 9580457 (Version 1)
Quarter: 2013Q4

REPORT INFORMATION
  Report Type: Report from Study
  Country: LB (occurrence: LB)
  Receive Date: 20131002
  Receipt Date: 20131002
  Transmission Date: 20140711
  Serious: Yes (Death)
  Sender: FDA-Public Use
  Company Number: LB-SA-2013SA096590

PATIENT
  Age: 62 Year
  Sex: Male

DRUGS (5)
  1. INSULIN GLARGINE [Suspect]
     Indication: TYPE 2 DIABETES MELLITUS
     Route: 058
     Dates: start: 2012
  2. GLUCOPHAGE [Concomitant]
  3. AMARYL [Concomitant]
  4. ISOPTIN [Concomitant]
  5. LOSARTAN [Concomitant]

REACTIONS (1)
  - Pancreatic carcinoma [Fatal]
